FAERS Safety Report 20089337 (Version 1)
Quarter: 2021Q4

REPORT INFORMATION
  Report Type: Spontaneous
  Country: CN (occurrence: CN)
  Receive Date: 20211119
  Receipt Date: 20211119
  Transmission Date: 20220303
  Serious: Yes (Other)
  Sender: FDA-Public Use
  Company Number: CN-ORGANON-O2111CHN001863

PATIENT
  Age: 71 Year
  Sex: Female

DRUGS (1)
  1. DIPROSPAN [Suspect]
     Active Substance: BETAMETHASONE DIPROPIONATE\BETAMETHASONE SODIUM PHOSPHATE
     Indication: Eczema
     Dosage: 1 ML, QD
     Route: 030
     Dates: start: 20211030, end: 20211030

REACTIONS (1)
  - Tachypnoea [Recovered/Resolved]

NARRATIVE: CASE EVENT DATE: 20211030
